FAERS Safety Report 5176466-9 (Version None)
Quarter: 2006Q4

REPORT INFORMATION
  Report Type: 
  Country: None (occurrence: None)
  Receive Date: 20061207
  Receipt Date: 20061129
  Transmission Date: 20070319
  Serious: Yes (Other)
  Sender: FDA-Public Use
  Company Number: 2006-05990

PATIENT
  Age: 39 Year
  Sex: Female

DRUGS (12)
  1. FERRLECIT [Suspect]
     Indication: DRUG USE FOR UNKNOWN INDICATION
     Dosage: 62.5 MG, 1/WEEK
     Dates: start: 20051015, end: 20061109
  2. RENAGEL [Concomitant]
  3. RAMIPRIL [Concomitant]
  4. PAROXETINE HYDROCHLORIDE [Concomitant]
  5. RIOPAN (MAGALDRATE) [Concomitant]
  6. OMEPRAZEN (OMEPRAZOLE) [Concomitant]
  7. LEUCOVORIN CALCIUM [Concomitant]
  8. NEORECORMON ^BOEHRINGER MANNHEIM^ (EPOETIN BETA) [Concomitant]
  9. CALCITRIOL [Concomitant]
  10. TORVAST (ATORVASTATIN CALCIUM) [Concomitant]
  11. ASPIRIN [Concomitant]
  12. CARNITENE (CARNITINE HYDROCHLORIDE) [Concomitant]

REACTIONS (4)
  - HYPERTENSION [None]
  - LARYNGEAL OEDEMA [None]
  - SUFFOCATION FEELING [None]
  - TACHYCARDIA [None]
